FAERS Safety Report 4886781-1 (Version None)
Quarter: 2006Q1

REPORT INFORMATION
  Report Type: 
  Country: None (occurrence: None)
  Receive Date: 20060119
  Receipt Date: 20060112
  Transmission Date: 20060701
  Serious: Yes (Other)
  Sender: FDA-Public Use
  Company Number: DE-2005-024864

PATIENT
  Sex: Female

DRUGS (1)
  1. MIRENA [Suspect]
     Indication: CONTRACEPTION
     Dosage: 20UG, CONT. INTRA-UTERINE
     Route: 015
     Dates: start: 20051111, end: 20051124

REACTIONS (7)
  - ACNE [None]
  - BALANCE DISORDER [None]
  - DIZZINESS [None]
  - FLUID RETENTION [None]
  - SUDDEN HEARING LOSS [None]
  - TOOTH EXTRACTION [None]
  - WEIGHT INCREASED [None]
